FAERS Safety Report 8560311-5 (Version None)
Quarter: 2012Q3

REPORT INFORMATION
  Report Type: 
  Country: None (occurrence: None)
  Receive Date: 20120802
  Receipt Date: 20120719
  Transmission Date: 20120928
  Serious: Yes (Other)
  Sender: FDA-Public Use
  Company Number: JP-ELI_LILLY_AND_COMPANY-JP201206006276

PATIENT
  Sex: Female
  Weight: 46 kg

DRUGS (2)
  1. STRATTERA [Suspect]
     Indication: ATTENTION DEFICIT/HYPERACTIVITY DISORDER
     Dosage: UNK
     Route: 048
     Dates: start: 20120521, end: 20120529
  2. STRATTERA [Suspect]
     Dosage: UNK
     Route: 048
     Dates: start: 20120530, end: 20120605

REACTIONS (1)
  - HYPERSOMNIA [None]
